FAERS Safety Report 8976412 (Version 1)
Quarter: 2012Q4

REPORT INFORMATION
  Report Type: Report from Study
  Country: AU (occurrence: AU)
  Receive Date: 20121220
  Receipt Date: 20121220
  Transmission Date: 20130627
  Serious: Yes (Hospitalization, Other)
  Sender: FDA-Public Use
  Company Number: AU-BRISTOL-MYERS SQUIBB COMPANY-17204405

PATIENT
  Age: 75 Year
  Sex: Female
  Weight: 71 kg

DRUGS (6)
  1. MITOMYCIN-C [Suspect]
     Indication: COLORECTAL CANCER METASTATIC
     Dosage: Given for 4 cycles
     Route: 042
     Dates: start: 20070710
  2. CAPECITABINE [Suspect]
     Indication: COLORECTAL CANCER METASTATIC
     Dosage: tabs,on days1-14 ,q3w
10Jul07-13feb08,13Mar08-unk,05Feb09-unk,23amr09-06Apr09
     Route: 048
     Dates: start: 20070710, end: 20090406
  3. BEVACIZUMAB [Suspect]
     Indication: COLORECTAL CANCER METASTATIC
     Dosage: 10Jul07-unk
13mar08-unk,05feb09-unk,23Mar09-06Apr09.
     Route: 042
     Dates: start: 20070710, end: 20090406
  4. ALPRIM [Concomitant]
     Indication: URINARY TRACT INFECTION
  5. ATACAND PLUS [Concomitant]
     Indication: HYPERTENSION
  6. NORVASC [Concomitant]
     Indication: HYPERTENSION
     Dates: start: 20080303, end: 20080513

REACTIONS (2)
  - Blood creatinine increased [Not Recovered/Not Resolved]
  - Renal failure acute [Recovered/Resolved with Sequelae]
